FAERS Safety Report 8122284-9 (Version None)
Quarter: 2012Q1

REPORT INFORMATION
  Report Type: 
  Country: None (occurrence: None)
  Receive Date: 20120206
  Receipt Date: 20120201
  Transmission Date: 20120608
  Serious: Yes (Hospitalization, Disabling, Other)
  Sender: FDA-Public Use
  Company Number: 2010SP065508

PATIENT
  Age: 20 Year
  Sex: Female

DRUGS (2)
  1. NUVARING [Suspect]
     Indication: CONTRACEPTION
     Dosage: VAG
     Route: 067
     Dates: start: 20070101, end: 20090127
  2. IBUPROFEN (ADVIL) [Concomitant]

REACTIONS (20)
  - PLEURITIC PAIN [None]
  - MYALGIA [None]
  - DEEP VEIN THROMBOSIS [None]
  - COAGULOPATHY [None]
  - DYSMENORRHOEA [None]
  - BACK PAIN [None]
  - HAEMATOCRIT DECREASED [None]
  - PULMONARY EMBOLISM [None]
  - INJURY [None]
  - ARRESTED LABOUR [None]
  - DRUG DEPENDENCE [None]
  - HAEMOGLOBIN DECREASED [None]
  - PLACENTAL INFARCTION [None]
  - HUMAN PAPILLOMA VIRUS TEST POSITIVE [None]
  - PULMONARY INFARCTION [None]
  - OVARIAN CYST [None]
  - CAESAREAN SECTION [None]
  - MATERNAL EXPOSURE DURING PREGNANCY [None]
  - HEADACHE [None]
  - ANXIETY [None]
